FAERS Safety Report 6647068-X (Version None)
Quarter: 2010Q1

REPORT INFORMATION
  Report Type: 
  Country: None (occurrence: None)
  Receive Date: 20100323
  Receipt Date: 20100310
  Transmission Date: 20100710
  Serious: Yes (Disabling, Other)
  Sender: FDA-Public Use
  Company Number: PHHY2010US09468

PATIENT
  Sex: Female
  Weight: 97 kg

DRUGS (3)
  1. RECLAST [Suspect]
     Indication: OSTEOPOROSIS
     Route: 042
  2. PROPRANOLOL [Concomitant]
     Indication: HYPERTENSION
     Dosage: 160 MG, QD
     Dates: start: 19800101
  3. AMLODIPINE [Concomitant]
     Indication: HYPERTENSION
     Dosage: 5 MG, QD

REACTIONS (5)
  - DRY EYE [None]
  - EYE INFLAMMATION [None]
  - INFLUENZA LIKE ILLNESS [None]
  - PYREXIA [None]
  - VISUAL IMPAIRMENT [None]
